FAERS Safety Report 14753882 (Version 2)
Quarter: 2018Q2

REPORT INFORMATION
  Report Type: Report from Study
  Country: US (occurrence: US)
  Receive Date: 20180412
  Receipt Date: 20180504
  Transmission Date: 20180711
  Serious: Yes (Other)
  Sender: FDA-Public Use
  Company Number: US-SAOL THERAPEUTICS-2018SAO00491

PATIENT
  Age: 59 Year
  Sex: Male

DRUGS (24)
  1. COMPOUNDED BACLOFEN [Suspect]
     Active Substance: BACLOFEN
     Dosage: 263.79 ?G, \DAY; TOTAL MAXIMUM DAILY DOSE
     Route: 037
     Dates: start: 20170526, end: 20170803
  2. COMPOUNDED BACLOFEN [Suspect]
     Active Substance: BACLOFEN
     Dosage: 109.99 ?G, \DAY
     Route: 037
     Dates: start: 20171019
  3. DILAUDID [Suspect]
     Active Substance: HYDROMORPHONE HYDROCHLORIDE
     Dosage: 2.6379 MG, \DAY; TOTAL MAXIMUM DAILY DOSE
     Route: 037
     Dates: start: 20170526, end: 20170803
  4. DILAUDID [Suspect]
     Active Substance: HYDROMORPHONE HYDROCHLORIDE
     Dosage: 1.7258 MG, \DAY; TOTAL MAXIMUM DAILY DOSE
     Route: 037
     Dates: start: 20170803, end: 20171019
  5. BUPIVACAINE. [Suspect]
     Active Substance: BUPIVACAINE
     Dosage: 10.507 MG, \DAY
     Route: 037
     Dates: start: 20170526, end: 20170803
  6. BUPIVACAINE. [Suspect]
     Active Substance: BUPIVACAINE
     Dosage: 5.763 MG, \DAY
     Route: 037
     Dates: start: 20171025
  7. COMPOUNDED BACLOFEN [Suspect]
     Active Substance: BACLOFEN
     Dosage: 172.58 ?G, \DAY; TOTAL MAXIMUM DAILY DOSE
     Route: 037
     Dates: start: 20170803, end: 20171019
  8. DILAUDID [Suspect]
     Active Substance: HYDROMORPHONE HYDROCHLORIDE
     Dosage: 0.9605 MG, \DAY
     Route: 037
     Dates: start: 20171025
  9. CLONIDINE. [Suspect]
     Active Substance: CLONIDINE
     Dosage: 86.29 ?G, \DAY; TOTAL MAXIMUM DAILY DOSE
     Route: 037
     Dates: start: 20170803, end: 20171019
  10. BUPIVACAINE. [Suspect]
     Active Substance: BUPIVACAINE
     Dosage: 10.355 MG, \DAY; TOTAL MAXIMUM DAILY DOSE
     Route: 037
     Dates: start: 20170803, end: 20171019
  11. COMPOUNDED BACLOFEN [Suspect]
     Active Substance: BACLOFEN
     Dosage: 96.05 ?G, \DAY
     Route: 037
     Dates: start: 20171025
  12. DILAUDID [Suspect]
     Active Substance: HYDROMORPHONE HYDROCHLORIDE
     Dosage: 1.7511 MG, \DAY
     Route: 037
     Dates: start: 20170526, end: 20170803
  13. CLONIDINE. [Suspect]
     Active Substance: CLONIDINE
     Dosage: 54.99 ?G, \DAY
     Route: 037
     Dates: start: 20171019
  14. BUPIVACAINE. [Suspect]
     Active Substance: BUPIVACAINE
     Dosage: 7.501 MG, \DAY
     Route: 037
     Dates: start: 20170803, end: 20171019
  15. CLONIDINE. [Suspect]
     Active Substance: CLONIDINE
     Dosage: 87.55 ?G, \DAY
     Route: 037
     Dates: start: 20170526, end: 20170803
  16. CLONIDINE. [Suspect]
     Active Substance: CLONIDINE
     Dosage: 48.03 ?G, \DAY
     Route: 037
     Dates: start: 20171025
  17. BUPIVACAINE. [Suspect]
     Active Substance: BUPIVACAINE
     Dosage: 15.827 MG, \DAY; TOTAL MAXIMUM DAILY DOSE
     Route: 037
     Dates: start: 20170526, end: 20170803
  18. BUPIVACAINE. [Suspect]
     Active Substance: BUPIVACAINE
     Dosage: 6.599 MG, \DAY
     Route: 037
     Dates: start: 20171019
  19. DILAUDID [Suspect]
     Active Substance: HYDROMORPHONE HYDROCHLORIDE
     Dosage: 1.2501 MG, \DAY
     Route: 037
     Dates: start: 20170803, end: 20171019
  20. CLONIDINE. [Suspect]
     Active Substance: CLONIDINE
     Dosage: 131.89 ?G, \DAY; TOTAL MAXIMUM DAILY DOSE
     Route: 037
     Dates: start: 20170526, end: 20170803
  21. CLONIDINE. [Suspect]
     Active Substance: CLONIDINE
     Dosage: 62.51 ?G, \DAY
     Route: 037
     Dates: start: 20170803, end: 20171019
  22. COMPOUNDED BACLOFEN [Suspect]
     Active Substance: BACLOFEN
     Dosage: 175.11 ?G, \DAY
     Route: 037
     Dates: start: 20170526, end: 20170803
  23. COMPOUNDED BACLOFEN [Suspect]
     Active Substance: BACLOFEN
     Dosage: 125.01 ?G, \DAY
     Route: 037
     Dates: start: 20170803, end: 20171019
  24. DILAUDID [Suspect]
     Active Substance: HYDROMORPHONE HYDROCHLORIDE
     Dosage: 1.099 MG, \DAY
     Route: 037
     Dates: start: 20171019

REACTIONS (5)
  - Drug withdrawal syndrome [Recovered/Resolved]
  - Therapy non-responder [Recovered/Resolved]
  - Pain [Recovered/Resolved]
  - Oedema [Recovered/Resolved]
  - Anxiety [Recovered/Resolved]

NARRATIVE: CASE EVENT DATE: 20170803
